FAERS Safety Report 5559295-3 (Version None)
Quarter: 2007Q4

REPORT INFORMATION
  Report Type: 
  Country: None (occurrence: None)
  Receive Date: 20071214
  Receipt Date: 20070925
  Transmission Date: 20080405
  Serious: No
  Sender: FDA-Public Use
  Company Number: US-ABBOTT-07P-163-0418475-00

PATIENT
  Sex: Male
  Weight: 91 kg

DRUGS (8)
  1. HUMIRA [Suspect]
     Indication: ANKYLOSING SPONDYLITIS
     Route: 058
     Dates: start: 20070924
  2. PHENYTOIN [Concomitant]
     Indication: CONVULSION
  3. FLUOXETINE [Concomitant]
     Indication: DRUG USE FOR UNKNOWN INDICATION
  4. WARFARIN SODIUM [Concomitant]
     Indication: DRUG USE FOR UNKNOWN INDICATION
  5. LOVASTATIN [Concomitant]
     Indication: DRUG USE FOR UNKNOWN INDICATION
  6. CELECOXIB [Concomitant]
     Indication: ARTHRITIS
  7. ATENOLOL [Concomitant]
     Indication: BLOOD PRESSURE
  8. VITAMIN CAP [Concomitant]
     Indication: VITAMIN SUPPLEMENTATION

REACTIONS (1)
  - DRUG ADMINISTRATION ERROR [None]
